FAERS Safety Report 11928496 (Version 1)
Quarter: 2016Q1

REPORT INFORMATION
  Report Type: Spontaneous
  Country: US (occurrence: US)
  Receive Date: 20160119
  Receipt Date: 20160119
  Transmission Date: 20160526
  Serious: Yes (Other)
  Sender: FDA-Public Use
  Company Number: US-PFIZER INC-2016010183

PATIENT
  Age: 65 Year
  Sex: Male

DRUGS (9)
  1. TACROLIMUS. [Interacting]
     Active Substance: TACROLIMUS
     Indication: PROPHYLAXIS AGAINST GRAFT VERSUS HOST DISEASE
     Dosage: 24-HOUR CONTINUOUS INFUSION
     Route: 041
  2. SIROLIMUS. [Interacting]
     Active Substance: SIROLIMUS
     Dosage: 4 MG, DAILY
  3. MICAFUNGIN [Concomitant]
     Active Substance: MICAFUNGIN
     Dosage: 50 MG, 1X/DAY
  4. TACROLIMUS. [Interacting]
     Active Substance: TACROLIMUS
     Dosage: 1:4 RATIO
     Route: 048
  5. CLOTRIMAZOLE. [Interacting]
     Active Substance: CLOTRIMAZOLE
     Dosage: 50 MG, DAILY (10 MG, 5 TIMES DAILY)
     Route: 048
  6. SIROLIMUS. [Suspect]
     Active Substance: SIROLIMUS
     Indication: PROPHYLAXIS AGAINST GRAFT VERSUS HOST DISEASE
     Dosage: 12 MG, DAILY (LOADING DOSE)
  7. TACROLIMUS. [Interacting]
     Active Substance: TACROLIMUS
     Dosage: 0.01 MG, UNK (IDEAL BODY WEIGHT)
     Route: 048
  8. ACICLOVIR [Concomitant]
     Active Substance: ACYCLOVIR
     Indication: PROPHYLAXIS
     Dosage: 800 MG, 2X/DAY
     Route: 048
  9. CIPROFLOXACIN. [Concomitant]
     Active Substance: CIPROFLOXACIN
     Dosage: 400 MG, 2X/DAY
     Route: 048

REACTIONS (4)
  - Drug interaction [Recovering/Resolving]
  - Drug level above therapeutic [Recovering/Resolving]
  - Acute kidney injury [Recovering/Resolving]
  - Product use issue [Unknown]
